FAERS Safety Report 20426484 (Version 1)
Quarter: 2022Q1

REPORT INFORMATION
  Report Type: Report from Study
  Country: US (occurrence: US)
  Receive Date: 20220204
  Receipt Date: 20220204
  Transmission Date: 20220424
  Serious: No
  Sender: FDA-Public Use
  Company Number: US-EXELIXIS-CABO-21042992

PATIENT
  Sex: Male

DRUGS (2)
  1. CABOMETYX [Suspect]
     Active Substance: CABOZANTINIB S-MALATE
     Indication: Renal cancer
     Dosage: 60 MG
     Dates: start: 20210704
  2. CABOMETYX [Suspect]
     Active Substance: CABOZANTINIB S-MALATE
     Dosage: 40 MG, QD
     Dates: start: 20210730

REACTIONS (13)
  - Limb discomfort [Unknown]
  - Tongue discomfort [Unknown]
  - Flatulence [Unknown]
  - Migraine [Unknown]
  - Contusion [Unknown]
  - Balance disorder [Unknown]
  - Impaired healing [Unknown]
  - Alopecia [Unknown]
  - Skin ulcer [Unknown]
  - Hair colour changes [Unknown]
  - Dysphonia [Unknown]
  - Blood pressure increased [Unknown]
  - Fatigue [Unknown]
